FAERS Safety Report 10528292 (Version 3)
Quarter: 2014Q4

REPORT INFORMATION
  Report Type: Spontaneous
  Country: US (occurrence: US)
  Receive Date: 20141020
  Receipt Date: 20141128
  Transmission Date: 20150528
  Serious: Yes (Other)
  Sender: FDA-Public Use
  Company Number: US-JNJFOC-20141010432

PATIENT
  Age: 6 Decade
  Sex: Female

DRUGS (9)
  1. ASA [Concomitant]
     Active Substance: ASPIRIN
     Indication: CORONARY ARTERY DISEASE
     Route: 048
  2. NORVASC [Concomitant]
     Active Substance: AMLODIPINE BESYLATE
     Indication: HYPERTENSION
     Route: 048
  3. XARELTO [Suspect]
     Active Substance: RIVAROXABAN
     Indication: PULMONARY EMBOLISM
     Route: 048
     Dates: start: 20140917, end: 20141001
  4. EFFIENT [Concomitant]
     Active Substance: PRASUGREL HYDROCHLORIDE
     Indication: CORONARY ARTERY DISEASE
     Route: 048
  5. NITRO PATCH (NITROGLYCERIN) [Concomitant]
     Indication: CARDIAC FAILURE CONGESTIVE
     Route: 065
  6. PRIMIDONE. [Interacting]
     Active Substance: PRIMIDONE
     Indication: TREMOR
     Route: 048
     Dates: end: 20140929
  7. PROTONIX [Concomitant]
     Active Substance: PANTOPRAZOLE SODIUM
     Indication: GASTROOESOPHAGEAL REFLUX DISEASE
     Route: 048
  8. XARELTO [Suspect]
     Active Substance: RIVAROXABAN
     Indication: DEEP VEIN THROMBOSIS
     Route: 048
     Dates: start: 20140917, end: 20141001
  9. NITRO PATCH (NITROGLYCERIN) [Concomitant]
     Indication: CORONARY ARTERY DISEASE
     Route: 065

REACTIONS (3)
  - Drug interaction [Unknown]
  - Pulmonary embolism [Unknown]
  - Pulmonary embolism [Recovering/Resolving]

NARRATIVE: CASE EVENT DATE: 2014
